FAERS Safety Report 23732238 (Version 4)
Quarter: 2025Q3

REPORT INFORMATION
  Report Type: Spontaneous
  Country: EU (occurrence: EU)
  Receive Date: 20240411
  Receipt Date: 20250730
  Transmission Date: 20251020
  Serious: Yes (Hospitalization, Other)
  Sender: ORGANON
  Company Number: EU-ORGANON-O2404ITA001400

PATIENT
  Age: 36 Year
  Sex: Female

DRUGS (1)
  1. ETONOGESTREL [Suspect]
     Active Substance: ETONOGESTREL
     Route: 065
     Dates: start: 20240131, end: 20240408

REACTIONS (12)
  - Device embolisation [Recovered/Resolved]
  - General anaesthesia [Unknown]
  - Surgery [Unknown]
  - Complication associated with device [Recovered/Resolved]
  - Device issue [Recovered/Resolved]
  - Device deployment issue [Recovered/Resolved]
  - Complication of device removal [Recovered/Resolved]
  - Device breakage [Recovered/Resolved]
  - Migraine [Unknown]
  - Breast tenderness [Unknown]
  - Mood swings [Unknown]
  - Loss of libido [Unknown]

NARRATIVE: CASE EVENT DATE: 20240131
